FAERS Safety Report 8166695-4 (Version None)
Quarter: 2012Q1

REPORT INFORMATION
  Report Type: 
  Country: None (occurrence: None)
  Receive Date: 20120227
  Receipt Date: 20120216
  Transmission Date: 20120608
  Serious: Yes (Other)
  Sender: FDA-Public Use
  Company Number: US-SANOFI-AVENTIS-2012SA010788

PATIENT
  Age: 71 Year
  Sex: Female
  Weight: 77.1 kg

DRUGS (7)
  1. SYNTHROID [Concomitant]
  2. DILTIAZEM HCL [Concomitant]
  3. ALDACTONE [Suspect]
  4. ATENOLOL [Concomitant]
  5. HYZAAR [Concomitant]
  6. PLAQUENIL [Suspect]
     Indication: COLLAGEN-VASCULAR DISEASE
     Dates: start: 19970101
  7. COREG [Suspect]

REACTIONS (3)
  - CHEST DISCOMFORT [None]
  - MALAISE [None]
  - TACHYCARDIA [None]
